FAERS Safety Report 10136420 (Version 2)
Quarter: 2014Q2

REPORT INFORMATION
  Report Type: Spontaneous
  Country: FR (occurrence: FR)
  Receive Date: 20140429
  Receipt Date: 20140617
  Transmission Date: 20141212
  Serious: No
  Sender: FDA-Public Use
  Company Number: FR-ELI_LILLY_AND_COMPANY-FR201404007553

PATIENT
  Age: 47 Year
  Sex: Female
  Weight: 52 kg

DRUGS (5)
  1. CYMBALTA [Suspect]
     Indication: PRODUCT USED FOR UNKNOWN INDICATION
     Dosage: 60 MG, UNKNOWN
     Route: 065
     Dates: start: 20121129, end: 201302
  2. CYMBALTA [Interacting]
     Dosage: 120 MG, UNKNOWN
     Route: 065
     Dates: start: 201302
  3. CYMBALTA [Interacting]
     Dosage: 60 MG, UNKNOWN
     Route: 065
     Dates: start: 20140312
  4. ALCOHOL [Interacting]
     Indication: PRODUCT USED FOR UNKNOWN INDICATION
     Dosage: UNK, UNKNOWN
     Route: 065
     Dates: end: 20140312
  5. TEMESTA [Concomitant]
     Indication: ANXIETY
     Dosage: 1 MG, UNKNOWN
     Route: 065
     Dates: start: 201401

REACTIONS (6)
  - Transaminases increased [Recovered/Resolved]
  - Gamma-glutamyltransferase increased [Recovered/Resolved]
  - Colitis [Unknown]
  - Cell death [Unknown]
  - Alcohol interaction [Recovered/Resolved]
  - Diarrhoea [Unknown]
